FAERS Safety Report 16012711 (Version 1)
Quarter: 2019Q1

REPORT INFORMATION
  Report Type: Spontaneous
  Country: GB (occurrence: GB)
  Receive Date: 20190227
  Receipt Date: 20190227
  Transmission Date: 20190418
  Serious: Yes (Other)
  Sender: FDA-Public Use
  Company Number: GB-PERRIGO-19GB002532

PATIENT

DRUGS (3)
  1. LORATADINE. [Suspect]
     Active Substance: LORATADINE
     Indication: PRODUCT USED FOR UNKNOWN INDICATION
  2. FLOUXETINE 20MG [Interacting]
     Active Substance: FLUOXETINE HYDROCHLORIDE
     Dosage: 20 MILLIGRAM DAILY;
  3. AVAMYS [Concomitant]
     Active Substance: FLUTICASONE FUROATE

REACTIONS (2)
  - Drug interaction [Unknown]
  - Convulsions local [Unknown]

NARRATIVE: CASE EVENT DATE: 201902
